FAERS Safety Report 25547916 (Version 1)
Quarter: 2025Q3

REPORT INFORMATION
  Report Type: Spontaneous
  Country: EU (occurrence: EU)
  Receive Date: 20250714
  Receipt Date: 20250714
  Transmission Date: 20251020
  Serious: Yes (Death, Other)
  Sender: CHEPLAPHARM
  Company Number: None

PATIENT
  Age: 25 Year
  Sex: Male

DRUGS (15)
  1. QUETIAPINE [Suspect]
     Active Substance: QUETIAPINE
     Indication: Depression
  2. ALPRAZOLAM [Suspect]
     Active Substance: ALPRAZOLAM
     Indication: Depression
  3. DESLORATADINE [Suspect]
     Active Substance: DESLORATADINE
     Indication: Product used for unknown indication
  4. FLUOXETINE HYDROCHLORIDE [Suspect]
     Active Substance: FLUOXETINE HYDROCHLORIDE
     Indication: Depression
  5. FLUOXETINE HYDROCHLORIDE [Suspect]
     Active Substance: FLUOXETINE HYDROCHLORIDE
     Indication: Contraindicated product administered
  6. FLURBIPROFEN [Suspect]
     Active Substance: FLURBIPROFEN
     Indication: Product used for unknown indication
  7. MOCLOBEMIDE [Suspect]
     Active Substance: MOCLOBEMIDE
     Indication: Depression
  8. MOCLOBEMIDE [Suspect]
     Active Substance: MOCLOBEMIDE
     Indication: Contraindicated product administered
  9. PERINDOPRIL [Suspect]
     Active Substance: PERINDOPRIL
     Indication: Product used for unknown indication
  10. PROPRANOLOL [Suspect]
     Active Substance: PROPRANOLOL HYDROCHLORIDE
     Indication: Product used for unknown indication
  11. CITALOPRAM [Suspect]
     Active Substance: CITALOPRAM
     Indication: Depression
  12. VALPROIC ACID [Suspect]
     Active Substance: VALPROIC ACID
     Indication: Depression
  13. DICLOFENAC [Suspect]
     Active Substance: DICLOFENAC
  14. HERBALS\TETRAHYDROCANNABINOL UNSPECIFIED [Suspect]
     Active Substance: HERBALS\TETRAHYDROCANNABINOL UNSPECIFIED
  15. ALCOHOL [Suspect]
     Active Substance: ALCOHOL

REACTIONS (9)
  - Ischaemic cerebral infarction [Fatal]
  - Hypertrophic cardiomyopathy [Fatal]
  - Sudden death [Fatal]
  - Bronchiectasis [Unknown]
  - Pulmonary oedema [Unknown]
  - Foaming at mouth [Unknown]
  - Secretion discharge [Unknown]
  - Arteriosclerosis [Unknown]
  - Lip haemorrhage [Unknown]
